FAERS Safety Report 21294888 (Version 1)
Quarter: 2022Q3

REPORT INFORMATION
  Report Type: Spontaneous
  Country: US (occurrence: US)
  Receive Date: 20220905
  Receipt Date: 20220905
  Transmission Date: 20221027
  Serious: No
  Sender: FDA-Public Use
  Company Number: US-BRISTOL-MYERS SQUIBB COMPANY-2022-100710

PATIENT
  Age: 78 Year
  Sex: Female
  Weight: 78 kg

DRUGS (1)
  1. REVLIMID [Suspect]
     Active Substance: LENALIDOMIDE
     Indication: Plasma cell myeloma
     Dosage: 15 MG, 2W ON 1W OFF
     Route: 048

REACTIONS (2)
  - Somnolence [Recovering/Resolving]
  - Off label use [Unknown]
